FAERS Safety Report 12892576 (Version 2)
Quarter: 2016Q4

REPORT INFORMATION
  Report Type: Spontaneous
  Country: US (occurrence: US)
  Receive Date: 20161028
  Receipt Date: 20161121
  Transmission Date: 20170207
  Serious: No
  Sender: FDA-Public Use
  Company Number: US-PFIZER INC-2016502977

PATIENT
  Age: 39 Year
  Sex: Male

DRUGS (1)
  1. VIAGRA [Suspect]
     Active Substance: SILDENAFIL CITRATE
     Indication: ERECTILE DYSFUNCTION
     Dosage: 100 MG (TAKE ONE EVERY WEEK OR TWO)
     Route: 048

REACTIONS (4)
  - Product quality issue [Unknown]
  - Flushing [Unknown]
  - Drug ineffective [Unknown]
  - Sinus congestion [Unknown]
